FAERS Safety Report 10503158 (Version 1)
Quarter: 2014Q4

REPORT INFORMATION
  Report Type: Spontaneous
  Country: GB (occurrence: GB)
  Receive Date: 20141007
  Receipt Date: 20141007
  Transmission Date: 20150528
  Serious: Yes (Hospitalization, Other)
  Sender: FDA-Public Use
  Company Number: PHHY2014GB128658

PATIENT
  Age: 69 Year
  Sex: Male
  Weight: 82 kg

DRUGS (2)
  1. CANDESARTAN CILEXETIL. [Suspect]
     Active Substance: CANDESARTAN CILEXETIL
     Indication: HYPERTENSION
     Dosage: 8 MG, UNK
     Route: 048
     Dates: start: 20140902, end: 20140909
  2. RAMIPRIL. [Concomitant]
     Active Substance: RAMIPRIL

REACTIONS (7)
  - Neutropenia [Recovered/Resolved]
  - Chills [Recovered/Resolved]
  - Thrombocytopenia [Recovered/Resolved]
  - Pain [Recovered/Resolved]
  - Pyrexia [Recovered/Resolved]
  - Lower respiratory tract infection [Recovered/Resolved]
  - Malaise [Recovered/Resolved]

NARRATIVE: CASE EVENT DATE: 201409
